FAERS Safety Report 11448267 (Version 1)
Quarter: 2015Q3

REPORT INFORMATION
  Report Type: Spontaneous
  Country: US (occurrence: US)
  Receive Date: 20150831
  Receipt Date: 20150831
  Transmission Date: 20151125
  Serious: No
  Sender: FDA-Public Use
  Company Number: US-ELI_LILLY_AND_COMPANY-US200906005224

PATIENT
  Sex: Male

DRUGS (1)
  1. CYMBALTA [Suspect]
     Active Substance: DULOXETINE HYDROCHLORIDE
     Indication: BACK PAIN
     Dosage: 60 MG, UNK
     Dates: end: 20090618

REACTIONS (5)
  - Amnesia [Unknown]
  - Nausea [Unknown]
  - Headache [Not Recovered/Not Resolved]
  - Vomiting [Unknown]
  - Confusional state [Unknown]
